FAERS Safety Report 23932137 (Version 1)
Quarter: 2024Q2

REPORT INFORMATION
  Report Type: Spontaneous
  Country: SE (occurrence: SE)
  Receive Date: 20240603
  Receipt Date: 20240603
  Transmission Date: 20240715
  Serious: Yes (Other)
  Sender: FDA-Public Use
  Company Number: None

PATIENT
  Age: 42 Year
  Sex: Male

DRUGS (2)
  1. QUETIAPINE FUMARATE [Suspect]
     Active Substance: QUETIAPINE FUMARATE
     Indication: Product used for unknown indication
     Dates: start: 202311, end: 20240326
  2. PROPIOMAZINE [Concomitant]
     Active Substance: PROPIOMAZINE

REACTIONS (3)
  - Constipation [Unknown]
  - Formication [Unknown]
  - Weight increased [Unknown]

NARRATIVE: CASE EVENT DATE: 20231101
